FAERS Safety Report 26117741 (Version 1)
Quarter: 2025Q4

REPORT INFORMATION
  Report Type: Spontaneous
  Country: US (occurrence: None)
  Receive Date: 20251203
  Receipt Date: 20251203
  Transmission Date: 20260118
  Serious: Yes (Hospitalization)
  Sender: FDA-CTU
  Company Number: None

PATIENT
  Age: 72 Year
  Sex: Male
  Weight: 113.85 kg

DRUGS (2)
  1. ZOLEDRONIC ACID [Suspect]
     Active Substance: ZOLEDRONIC ACID
     Indication: Plasma cell myeloma
     Dosage: 3.5 MG ONCE INTRAVENOUS ?
     Route: 042
     Dates: start: 20250626, end: 20250626
  2. ZOLEDRONIC ACID [Suspect]
     Active Substance: ZOLEDRONIC ACID
     Indication: Metastases to bone

REACTIONS (4)
  - Infusion related reaction [None]
  - Constipation [None]
  - Renal tubular necrosis [None]
  - Pain in jaw [None]

NARRATIVE: CASE EVENT DATE: 20250626
